FAERS Safety Report 6398543-7 (Version None)
Quarter: 2009Q4

REPORT INFORMATION
  Report Type: 
  Country: None (occurrence: None)
  Receive Date: 20091013
  Receipt Date: 20091001
  Transmission Date: 20100525
  Serious: Yes (Life-Threatening, Hospitalization, Other)
  Sender: FDA-Public Use
  Company Number: JP-PFIZER INC-2008155668

PATIENT
  Age: 60 Year

DRUGS (5)
  1. SUNITINIB MALATE [Suspect]
     Indication: RENAL CELL CARCINOMA
     Dosage: 50 MG, 1X/DAY
     Route: 048
     Dates: start: 20081118
  2. LASIX [Concomitant]
     Dosage: UNK
     Route: 048
     Dates: end: 20090312
  3. MINOCYCLINE HCL [Concomitant]
     Route: 048
  4. BLOPRESS [Concomitant]
     Dosage: UNK
     Route: 048
     Dates: end: 20090312
  5. ALLOPURINOL [Concomitant]
     Dosage: UNK
     Route: 048
     Dates: end: 20090312

REACTIONS (10)
  - ASTHENIA [None]
  - DEHYDRATION [None]
  - DIARRHOEA [None]
  - HAEMODIALYSIS [None]
  - HAEMOGLOBIN DECREASED [None]
  - HEART RATE DECREASED [None]
  - MALAISE [None]
  - PLATELET COUNT DECREASED [None]
  - RENAL FAILURE ACUTE [None]
  - WHITE BLOOD CELL COUNT DECREASED [None]
